FAERS Safety Report 14183532 (Version 2)
Quarter: 2017Q4

REPORT INFORMATION
  Report Type: Spontaneous
  Country: JP (occurrence: JP)
  Receive Date: 20171113
  Receipt Date: 20171211
  Transmission Date: 20180321
  Serious: Yes (Other)
  Sender: FDA-Public Use
  Company Number: JP-ROCHE-2024485

PATIENT
  Age: 78 Year
  Sex: Female

DRUGS (4)
  1. BONVIVA [Suspect]
     Active Substance: IBANDRONATE SODIUM
     Indication: OSTEOPOROSIS
     Route: 048
     Dates: start: 20171027, end: 20171027
  2. RESCULA [Concomitant]
     Active Substance: UNOPROSTONE ISOPROPYL
     Dosage: DOSAGE IS UNCERTAIN.
     Route: 047
  3. EDIROL [Concomitant]
     Active Substance: ELDECALCITOL
     Indication: OSTEOPOROSIS
     Dosage: DOSAGE IS UNCERTAIN.
     Route: 048
     Dates: start: 20171027
  4. TAPROS (JAPAN) [Concomitant]
     Dosage: DOSAGE IS UNCERTAIN.
     Route: 047

REACTIONS (7)
  - Fall [Unknown]
  - Loss of consciousness [Unknown]
  - Head injury [Unknown]
  - Pyrexia [Unknown]
  - Influenza like illness [Recovered/Resolved]
  - Contusion [Unknown]
  - Dizziness [Unknown]

NARRATIVE: CASE EVENT DATE: 20171027
